FAERS Safety Report 6700250-5 (Version None)
Quarter: 2010Q2

REPORT INFORMATION
  Report Type: 
  Country: None (occurrence: None)
  Receive Date: 20100426
  Receipt Date: 20090706
  Transmission Date: 20101027
  Serious: Yes (Other)
  Sender: FDA-Public Use
  Company Number: WAES 0907USA00691

PATIENT
  Age: 14 Year
  Sex: Male

DRUGS (1)
  1. SINGULAIR [Suspect]
     Indication: ASTHMA
     Dosage: 10 MG/DAILY/PO
     Route: 048
     Dates: start: 20090601, end: 20090101

REACTIONS (2)
  - CONVULSION [None]
  - OVERDOSE [None]
